FAERS Safety Report 4788755-8 (Version None)
Quarter: 2005Q4

REPORT INFORMATION
  Report Type: 
  Country: None (occurrence: None)
  Receive Date: 20051004
  Receipt Date: 20050923
  Transmission Date: 20060501
  Serious: Yes (Hospitalization)
  Sender: FDA-Public Use
  Company Number: EWC050945892

PATIENT
  Age: 14 Year
  Sex: Female

DRUGS (5)
  1. HUMALOG [Suspect]
     Indication: DIABETES MELLITUS INSULIN-DEPENDENT
     Dates: start: 20050817
  2. INSULIN GLARGINE [Concomitant]
  3. AMOXICILLIN [Concomitant]
  4. LACTOBACILLUS REUTERI [Concomitant]
  5. CEFUROXIME [Concomitant]

REACTIONS (5)
  - ACUTE SINUSITIS [None]
  - DEHYDRATION [None]
  - DEVICE FAILURE [None]
  - DIABETIC KETOACIDOSIS [None]
  - KETOACIDOSIS [None]
